FAERS Safety Report 8064170-9 (Version None)
Quarter: 2012Q1

REPORT INFORMATION
  Report Type: 
  Country: None (occurrence: None)
  Receive Date: 20120123
  Receipt Date: 20120120
  Transmission Date: 20120608
  Serious: Yes (Other)
  Sender: FDA-Public Use
  Company Number: DE-GLAXOSMITHKLINE-D0074194A

PATIENT
  Age: 34 Year
  Sex: Male

DRUGS (1)
  1. LAMICTAL [Suspect]
     Dosage: 500MG PER DAY
     Route: 048
     Dates: start: 20080101

REACTIONS (1)
  - AGGRESSION [None]
